FAERS Safety Report 7020504-5 (Version None)
Quarter: 2010Q3

REPORT INFORMATION
  Report Type: 
  Country: None (occurrence: None)
  Receive Date: 20100929
  Receipt Date: 20100920
  Transmission Date: 20110219
  Serious: Yes (Hospitalization)
  Sender: FDA-Public Use
  Company Number: CA-ROCHE-728614

PATIENT
  Sex: Female

DRUGS (5)
  1. BEVACIZUMAB [Suspect]
     Indication: GLIOBLASTOMA
     Dosage: INFUSION
     Route: 042
     Dates: start: 20100604
  2. DILANTIN [Concomitant]
  3. CLOBAZAM [Concomitant]
  4. TYLENOL [Concomitant]
  5. BETASERON [Concomitant]
     Dosage: DRUG REPORTED AS BETA-SERON INTERFERON

REACTIONS (12)
  - ABDOMINAL PAIN [None]
  - BLOOD SODIUM DECREASED [None]
  - FATIGUE [None]
  - GAIT DISTURBANCE [None]
  - HEADACHE [None]
  - HYPOAESTHESIA [None]
  - MUSCULOSKELETAL PAIN [None]
  - MYALGIA [None]
  - OEDEMA PERIPHERAL [None]
  - PYREXIA [None]
  - VISUAL ACUITY REDUCED [None]
  - VOMITING [None]
